FAERS Safety Report 10064561 (Version 1)
Quarter: 2014Q2

REPORT INFORMATION
  Report Type: Spontaneous
  Country: GB (occurrence: GB)
  Receive Date: 20140408
  Receipt Date: 20140408
  Transmission Date: 20141212
  Serious: Yes (Other)
  Sender: FDA-Public Use
  Company Number: GB-MYLANLABS-2014S1007435

PATIENT
  Age: 67 Year
  Sex: Male

DRUGS (5)
  1. ROPINIROLE [Suspect]
     Indication: PARKINSON^S DISEASE
     Route: 065
  2. ROPINIROLE [Suspect]
     Indication: PARKINSON^S DISEASE
     Route: 065
  3. CO-CARELDOPA [Suspect]
     Indication: PARKINSON^S DISEASE
     Dosage: 100/25 MG 5 TIMES A DAY
     Route: 065
  4. SELEGILINE [Suspect]
     Indication: PARKINSON^S DISEASE
     Route: 065
  5. TRIMETHOPRIM [Concomitant]
     Indication: URINARY TRACT INFECTION
     Route: 065

REACTIONS (3)
  - Parkinsonism hyperpyrexia syndrome [Recovering/Resolving]
  - Drug withdrawal syndrome [Recovering/Resolving]
  - Labile blood pressure [Unknown]
